FAERS Safety Report 8195534 (Version 3)
Quarter: 2014Q1

REPORT INFORMATION
  Report Type: Spontaneous
  Country: US (occurrence: US)
  Receive Date: 20111024
  Receipt Date: 20140204
  Transmission Date: 20141002
  Serious: Yes (Hospitalization, Other)
  Sender: FDA-Public Use
  Company Number: US-ROCHE-1006346

PATIENT
  Sex: Male
  Weight: 77.18 kg

DRUGS (6)
  1. ACCUTANE [Suspect]
     Indication: ACNE
     Route: 065
     Dates: start: 20030304, end: 20041214
  2. ACCUTANE [Suspect]
     Dosage: FILLED SIX TIMES
     Route: 065
     Dates: start: 20000101, end: 20060101
  3. ACCUTANE [Suspect]
     Dosage: FILLED APPROX SEVEN TIMES
     Route: 065
     Dates: start: 20060101
  4. ADVIL [Concomitant]
  5. ZYRTEC [Concomitant]
  6. ZITHROMAX [Concomitant]

REACTIONS (8)
  - Small intestinal obstruction [Unknown]
  - Colitis ulcerative [Unknown]
  - Inflammatory bowel disease [Unknown]
  - Anxiety [Unknown]
  - Crohn^s disease [Unknown]
  - Supraventricular tachycardia [Unknown]
  - Fracture [Unknown]
  - Irritable bowel syndrome [Unknown]
